FAERS Safety Report 8136827-2 (Version None)
Quarter: 2012Q1

REPORT INFORMATION
  Report Type: 
  Country: None (occurrence: None)
  Receive Date: 20120214
  Receipt Date: 20120206
  Transmission Date: 20120608
  Serious: Yes (Hospitalization)
  Sender: FDA-Public Use
  Company Number: PT-B.I. PHARMACEUTICALS,INC./RIDGEFIELD-2012-EU-00806PO

PATIENT
  Sex: Male

DRUGS (4)
  1. HYTACAND/CANDESARTAN [Concomitant]
     Indication: HYPERTENSION
  2. CRESTOR [Concomitant]
  3. PRADAXA [Suspect]
     Indication: ATRIAL FIBRILLATION
     Dosage: 220 MG
  4. DILTIAZEM HYDROCHLORIDE [Concomitant]

REACTIONS (1)
  - ISCHAEMIC STROKE [None]
